FAERS Safety Report 7781206-0 (Version None)
Quarter: 2011Q3

REPORT INFORMATION
  Report Type: 
  Country: None (occurrence: None)
  Receive Date: 20110927
  Receipt Date: 20110920
  Transmission Date: 20111222
  Serious: Yes (Other)
  Sender: FDA-Public Use
  Company Number: CA-PFIZER INC-2011222943

PATIENT
  Age: 59 Year
  Sex: Male

DRUGS (3)
  1. XALATAN [Suspect]
     Indication: GLAUCOMA
     Dosage: 1 GTT IN BOTH EYES, 1X/DAY
     Route: 047
  2. ALPHAGAN [Concomitant]
     Indication: GLAUCOMA
     Dosage: 1 GTT IN BOTH EYES
     Route: 047
  3. AZOPT [Concomitant]
     Indication: GLAUCOMA
     Dosage: 1 GTT IN BOTH EYES
     Route: 047

REACTIONS (4)
  - INTRAOCULAR PRESSURE INCREASED [None]
  - RETINAL HAEMORRHAGE [None]
  - CATARACT OPERATION [None]
  - ASTHMA [None]
